FAERS Safety Report 7892262-3 (Version None)
Quarter: 2011Q4

REPORT INFORMATION
  Report Type: 
  Country: None (occurrence: None)
  Receive Date: 20111104
  Receipt Date: 20111026
  Transmission Date: 20120403
  Serious: No
  Sender: FDA-Public Use
  Company Number: US-BIOGENIDEC-2010BI022258

PATIENT
  Sex: Female

DRUGS (7)
  1. TYSABRI [Suspect]
     Route: 042
     Dates: start: 20111019
  2. LAMICTAL [Concomitant]
     Indication: EPILEPSY
     Dates: start: 19950101
  3. VIMPAT [Concomitant]
     Indication: EPILEPSY
     Dates: start: 19950101
  4. ZONEGRAN [Concomitant]
     Indication: EPILEPSY
     Dates: start: 19950101
  5. RANITIDINE [Concomitant]
     Indication: GASTROOESOPHAGEAL REFLUX DISEASE
     Dates: start: 20000101
  6. TRAZODONE HCL [Concomitant]
     Indication: DEPRESSION
  7. TYSABRI [Suspect]
     Indication: MULTIPLE SCLEROSIS
     Route: 042
     Dates: start: 20070425, end: 20110115

REACTIONS (7)
  - ANXIETY [None]
  - FIBROMYALGIA [None]
  - SYSTEMIC LUPUS ERYTHEMATOSUS [None]
  - PAIN [None]
  - HYPOAESTHESIA [None]
  - TREMOR [None]
  - ARTHRITIS [None]
